FAERS Safety Report 4899622-3 (Version None)
Quarter: 2006Q1

REPORT INFORMATION
  Report Type: 
  Country: None (occurrence: None)
  Receive Date: 20060118
  Receipt Date: 20050921
  Transmission Date: 20060701
  Serious: No
  Sender: FDA-Public Use
  Company Number: 2005001855

PATIENT
  Age: 46 Year
  Sex: Male

DRUGS (3)
  1. . [Concomitant]
  2. TARCEVA [Suspect]
     Dosage: SEE IMAGE
     Route: 048
     Dates: end: 20050714
  3. RADIO-ABLATION [Concomitant]

REACTIONS (6)
  - ABDOMINAL DISCOMFORT [None]
  - BRAIN SCAN ABNORMAL [None]
  - GASTROINTESTINAL DISORDER [None]
  - HEADACHE [None]
  - MYALGIA [None]
  - RASH [None]
